FAERS Safety Report 25907174 (Version 1)
Quarter: 2025Q4

REPORT INFORMATION
  Report Type: Spontaneous
  Country: US (occurrence: US)
  Receive Date: 20251010
  Receipt Date: 20251010
  Transmission Date: 20260117
  Serious: No
  Sender: BAYER HEALTHCARE LLC
  Company Number: US-BAYER-2025A133434

PATIENT
  Age: 76 Year
  Sex: Female

DRUGS (2)
  1. MIRALAX [Suspect]
     Active Substance: POLYETHYLENE GLYCOL 3350
     Indication: Colonoscopy
     Dosage: DISSOLVED IN 64OZ OF A CLEAR LIQUID DOSE
     Route: 048
  2. Dulcolax [Concomitant]
     Dosage: UNK

REACTIONS (1)
  - Product prescribing issue [Unknown]
